FAERS Safety Report 6063647-5 (Version None)
Quarter: 2009Q1

REPORT INFORMATION
  Report Type: 
  Country: None (occurrence: None)
  Receive Date: 20090129
  Receipt Date: 20090113
  Transmission Date: 20090719
  Serious: Yes (Death)
  Sender: FDA-Public Use
  Company Number: 2008S1022574

PATIENT
  Age: 88 Year
  Sex: Male
  Weight: 77.5651 kg

DRUGS (14)
  1. FENTANYL TRANSDERMAL SYSTEM [Suspect]
     Indication: PAIN
     Dosage: 100 UG; EVERY HOUR; TRANSDERMAL
     Route: 062
  2. PRILOSEC [Concomitant]
  3. ALPRAZOLAM [Concomitant]
  4. ASPIRIN [Concomitant]
  5. GLIPIZIDE [Concomitant]
  6. CARVEDILOL [Concomitant]
  7. ISORBIDE [Concomitant]
  8. HUMALOG [Concomitant]
  9. PREDNISONE [Concomitant]
  10. SIMVASTATIN [Concomitant]
  11. ROZAM [Concomitant]
  12. RISPERIDONE [Concomitant]
  13. DOCUSATE [Concomitant]
  14. XODOL [Concomitant]

REACTIONS (6)
  - CARDIAC FAILURE CONGESTIVE [None]
  - CORONARY ARTERY DISEASE [None]
  - DRUG EFFECT DECREASED [None]
  - METABOLIC SYNDROME [None]
  - PAIN [None]
  - PRODUCT QUALITY ISSUE [None]
